FAERS Safety Report 5723930-7 (Version None)
Quarter: 2008Q2

REPORT INFORMATION
  Report Type: 
  Country: None (occurrence: None)
  Receive Date: 20080430
  Receipt Date: 20080421
  Transmission Date: 20081010
  Serious: Yes (Death)
  Sender: FDA-Public Use
  Company Number: US-SANOFI-SYNTHELABO-A03200800584

PATIENT
  Sex: Male

DRUGS (6)
  1. MUCINEX [Concomitant]
     Indication: DRUG USE FOR UNKNOWN INDICATION
     Dosage: UNK
     Route: 048
  2. SONATA [Concomitant]
     Indication: INSOMNIA
     Route: 048
  3. ADDERALL 10 [Concomitant]
     Indication: ATTENTION DEFICIT/HYPERACTIVITY DISORDER
     Dosage: 1/2 TO 1 TABLET EVERY MORNING
     Route: 048
  4. WELLBUTRIN [Concomitant]
     Indication: MAJOR DEPRESSION
     Route: 048
  5. AMBIEN [Suspect]
     Indication: INSOMNIA
     Route: 048
     Dates: start: 20040714
  6. MUCINEX [Suspect]

REACTIONS (1)
  - DRUG LEVEL ABOVE THERAPEUTIC [None]
